FAERS Safety Report 19939481 (Version 6)
Quarter: 2022Q1

REPORT INFORMATION
  Report Type: Spontaneous
  Country: IT (occurrence: IT)
  Receive Date: 20211011
  Receipt Date: 20220224
  Transmission Date: 20220423
  Serious: Yes (Other)
  Sender: FDA-Public Use
  Company Number: NVSC2021IT229338

PATIENT
  Age: 74 Year
  Sex: Female

DRUGS (3)
  1. BROLUCIZUMAB [Suspect]
     Active Substance: BROLUCIZUMAB
     Indication: Neovascular age-related macular degeneration
     Dosage: 6 MG, QMO
     Route: 065
     Dates: start: 20210514
  2. BROLUCIZUMAB [Suspect]
     Active Substance: BROLUCIZUMAB
     Dosage: 6 MG, QMO
     Route: 065
     Dates: start: 20210615
  3. BROLUCIZUMAB [Suspect]
     Active Substance: BROLUCIZUMAB
     Dosage: 6 MG, QMO
     Route: 065
     Dates: start: 20210721

REACTIONS (19)
  - Optic ischaemic neuropathy [Recovering/Resolving]
  - Hypoperfusion [Not Recovered/Not Resolved]
  - Choroidal infarction [Not Recovered/Not Resolved]
  - Vitritis [Recovered/Resolved]
  - Retinal vascular occlusion [Not Recovered/Not Resolved]
  - Retinal vasculitis [Recovered/Resolved]
  - Retinal haemorrhage [Not Recovered/Not Resolved]
  - Retinal ischaemia [Not Recovered/Not Resolved]
  - Ocular hyperaemia [Not Recovered/Not Resolved]
  - Blindness [Not Recovered/Not Resolved]
  - Cataract [Unknown]
  - Eye pain [Not Recovered/Not Resolved]
  - Condition aggravated [Not Recovered/Not Resolved]
  - Conjunctival hyperaemia [Unknown]
  - Papillitis [Recovering/Resolving]
  - Visual field defect [Unknown]
  - Maculopathy [Not Recovered/Not Resolved]
  - Visual impairment [Unknown]
  - Visual acuity reduced [Not Recovered/Not Resolved]

NARRATIVE: CASE EVENT DATE: 20210823
